FAERS Safety Report 8484842 (Version 4)
Quarter: 2013Q1

REPORT INFORMATION
  Report Type: Report from Study
  Country: BR (occurrence: BR)
  Receive Date: 20120330
  Receipt Date: 20130319
  Transmission Date: 20140127
  Serious: Yes (Other)
  Sender: FDA-Public Use
  Company Number: BR-ROCHE-1049862

PATIENT
  Age: 37 None
  Sex: Female
  Weight: 56 kg

DRUGS (4)
  1. MABTHERA [Suspect]
     Indication: GLOMERULONEPHRITIS
     Route: 065
     Dates: start: 201004, end: 20121212
  2. REUQUINOL [Concomitant]
     Indication: PRODUCT USED FOR UNKNOWN INDICATION
  3. VASOPRIL (BRAZIL) [Concomitant]
     Indication: PRODUCT USED FOR UNKNOWN INDICATION
     Route: 065
  4. PREDNISONE [Concomitant]
     Route: 065

REACTIONS (4)
  - Abortion spontaneous [Unknown]
  - Exposure during pregnancy [Unknown]
  - Chest discomfort [Recovered/Resolved]
  - Erythema [Recovered/Resolved]
